FAERS Safety Report 5930792-1 (Version None)
Quarter: 2008Q4

REPORT INFORMATION
  Report Type: 
  Country: None (occurrence: None)
  Receive Date: 20081022
  Receipt Date: 20081012
  Transmission Date: 20090506
  Serious: Yes (Other)
  Sender: FDA-Public Use
  Company Number: 2008-03897

PATIENT
  Age: 69 Year
  Sex: Female

DRUGS (1)
  1. VELCADE [Suspect]
     Indication: MULTIPLE MYELOMA
     Dosage: INTRAVENOUS
     Route: 042

REACTIONS (6)
  - FACE INJURY [None]
  - FALL [None]
  - NEUROPATHY PERIPHERAL [None]
  - PLATELET COUNT DECREASED [None]
  - SUBARACHNOID HAEMORRHAGE [None]
  - TRAUMATIC HAEMATOMA [None]
